FAERS Safety Report 7459584-1 (Version None)
Quarter: 2011Q2

REPORT INFORMATION
  Report Type: 
  Country: None (occurrence: None)
  Receive Date: 20110504
  Receipt Date: 20110504
  Transmission Date: 20111010
  Serious: Yes (Hospitalization)
  Sender: FDA-Public Use
  Company Number: None

PATIENT
  Sex: Female
  Weight: 104 kg

DRUGS (2)
  1. CISPLATIN [Suspect]
     Dosage: 180MG
  2. ETOPOSIDE [Suspect]
     Dosage: 300MG

REACTIONS (5)
  - BLOOD CREATININE INCREASED [None]
  - OESOPHAGITIS [None]
  - DEHYDRATION [None]
  - DYSPHAGIA [None]
  - NEUTROPENIA [None]
